FAERS Safety Report 11070916 (Version 2)
Quarter: 2015Q2

REPORT INFORMATION
  Report Type: Spontaneous
  Country: US (occurrence: US)
  Receive Date: 20150428
  Receipt Date: 20150507
  Transmission Date: 20150821
  Serious: Yes (Other)
  Sender: FDA-Public Use
  Company Number: US-BEH-2014047394

PATIENT
  Age: 58 Year
  Sex: Female

DRUGS (3)
  1. FLU SHOT [Suspect]
     Active Substance: INFLUENZA VIRUS VACCINE
  2. BERINERT [Suspect]
     Active Substance: HUMAN C1-ESTERASE INHIBITOR
  3. BERINERT [Suspect]
     Active Substance: HUMAN C1-ESTERASE INHIBITOR
     Indication: HEREDITARY ANGIOEDEMA

REACTIONS (5)
  - Fall [Recovering/Resolving]
  - Spinal fracture [Recovering/Resolving]
  - Oropharyngeal pain [Unknown]
  - Pain [Unknown]
  - Pyrexia [Unknown]

NARRATIVE: CASE EVENT DATE: 20150330
